FAERS Safety Report 16735096 (Version 1)
Quarter: 2019Q3

REPORT INFORMATION
  Report Type: Spontaneous
  Country: US (occurrence: US)
  Receive Date: 20190708
  Receipt Date: 20190708
  Transmission Date: 20191005
  Serious: Yes (Hospitalization)
  Sender: FDA-Public Use
  Company Number: None

PATIENT
  Age: 58 Year
  Sex: Male

DRUGS (19)
  1. FLUTICASONE SPR 50MCG [Concomitant]
     Active Substance: FLUTICASONE
  2. MIRTAZAPINE. [Concomitant]
     Active Substance: MIRTAZAPINE
  3. TRUPLUS LANC MIS 33G [Concomitant]
  4. DULOXETINE CAP 30MG [Concomitant]
  5. LEVAQUIN TAB 750MG [Concomitant]
  6. REPATHA [Suspect]
     Active Substance: EVOLOCUMAB
     Indication: HYPERCHOLESTEROLAEMIA
     Dosage: 1 PEN ONCE   ... EVERY 2 WEEKS INJ SC
     Route: 058
     Dates: start: 20190315
  7. AMOX/K CLAV TAB [Concomitant]
  8. FUROSEMIDE TAB 20MG [Concomitant]
  9. LISINOPRILTAB 10MG [Concomitant]
  10. METOPROL TAR TAB [Concomitant]
  11. PANTOPRA 40MGZOLE TAB [Concomitant]
  12. ATORVASTATIN TAB [Concomitant]
     Active Substance: ATORVASTATIN
  13. RANEXA TAB 1000MG [Concomitant]
  14. CLOPIDOGREL TAB [Concomitant]
  15. EZETIMBE TAB 10 MG [Concomitant]
  16. ISOSORB MONO TAB 120MG ER [Concomitant]
  17. LYRICA CAP 150MG [Concomitant]
  18. MONTELUKAST TAB [Concomitant]
  19. BUPROPION TAB [Concomitant]

REACTIONS (1)
  - Pneumonia [None]

NARRATIVE: CASE EVENT DATE: 20190605
